FAERS Safety Report 6849914-3 (Version None)
Quarter: 2010Q3

REPORT INFORMATION
  Report Type: 
  Country: None (occurrence: None)
  Receive Date: 20100716
  Receipt Date: 20071007
  Transmission Date: 20110219
  Serious: No
  Sender: FDA-Public Use
  Company Number: US-PFIZER INC-2007084821

PATIENT
  Sex: Male
  Weight: 79.4 kg

DRUGS (2)
  1. CHANTIX [Suspect]
     Indication: SMOKING CESSATION THERAPY
     Dates: start: 20070801, end: 20070903
  2. CARDIAC THERAPY [Concomitant]

REACTIONS (4)
  - AGGRESSION [None]
  - DISORIENTATION [None]
  - PHOTOPSIA [None]
  - VISION BLURRED [None]
